FAERS Safety Report 10388117 (Version 2)
Quarter: 2015Q4

REPORT INFORMATION
  Report Type: Spontaneous
  Country: US (occurrence: US)
  Receive Date: 20140815
  Receipt Date: 20151218
  Transmission Date: 20160304
  Serious: Yes (Hospitalization, Other)
  Sender: FDA-Public Use
  Company Number: US-BAYER-2014-122170

PATIENT
  Age: 51 Year
  Sex: Female

DRUGS (11)
  1. GIANVI [Suspect]
     Active Substance: DROSPIRENONE\ETHINYL ESTRADIOL
     Route: 048
  2. ZYRTEC [Concomitant]
     Active Substance: CETIRIZINE HYDROCHLORIDE
  3. MANNITOL. [Concomitant]
     Active Substance: MANNITOL
     Indication: CEREBRAL OEDEMA MANAGEMENT
  4. DEXAMETHASONE. [Concomitant]
     Active Substance: DEXAMETHASONE
  5. YAZ [Suspect]
     Active Substance: DROSPIRENONE\ETHINYL ESTRADIOL
     Indication: VAGINAL HAEMORRHAGE
     Dosage: ONE DAILY
     Route: 048
  6. YAZ [Suspect]
     Active Substance: DROSPIRENONE\ETHINYL ESTRADIOL
     Indication: UTERINE HAEMORRHAGE
  7. FLUTICASONE [Concomitant]
     Active Substance: FLUTICASONE\FLUTICASONE PROPIONATE
     Dosage: 50 MCG
  8. DIPHENHYDRAMINE. [Concomitant]
     Active Substance: DIPHENHYDRAMINE
     Indication: PRURITUS
  9. YASMIN [Suspect]
     Active Substance: DROSPIRENONE\ETHINYL ESTRADIOL
     Indication: MENSTRUAL CYCLE MANAGEMENT
     Dosage: UNK
     Route: 048
     Dates: end: 2009
  10. NICARDIPINE [Concomitant]
     Active Substance: NICARDIPINE
     Indication: HYPERTENSION
  11. METROGEL [Concomitant]
     Active Substance: METRONIDAZOLE
     Dosage: 1% GEL

REACTIONS (4)
  - Cerebral infarction [None]
  - Pulmonary embolism [None]
  - Embolism arterial [None]
  - Ischaemic stroke [None]

NARRATIVE: CASE EVENT DATE: 20120717
